FAERS Safety Report 5270722-1 (Version None)
Quarter: 2007Q1

REPORT INFORMATION
  Report Type: 
  Country: None (occurrence: None)
  Receive Date: 20070319
  Receipt Date: 20070319
  Transmission Date: 20070707
  Serious: Yes (Other)
  Sender: FDA-Public Use
  Company Number: None

PATIENT
  Age: 31 Year
  Sex: Male
  Weight: 82.1011 kg

DRUGS (1)
  1. LAMICTAL [Suspect]
     Indication: SYSTEMIC ANTIFUNGAL TREATMENT

REACTIONS (1)
  - GILBERT'S SYNDROME [None]
